FAERS Safety Report 4495404-5 (Version None)
Quarter: 2004Q4

REPORT INFORMATION
  Report Type: 
  Country: None (occurrence: None)
  Receive Date: 20041108
  Receipt Date: 20041101
  Transmission Date: 20050328
  Serious: Yes (Other)
  Sender: FDA-Public Use
  Company Number: PHBS2004JP14751

PATIENT
  Sex: 0

DRUGS (3)
  1. VOLTAREN [Suspect]
     Route: 054
  2. KLARICID [Concomitant]
     Route: 048
  3. BUP-4 [Concomitant]
     Route: 048

REACTIONS (2)
  - BLOOD CREATINE PHOSPHOKINASE INCREASED [None]
  - RHABDOMYOLYSIS [None]
